FAERS Safety Report 21698472 (Version 1)
Quarter: 2022Q4

REPORT INFORMATION
  Report Type: Other
  Country: US (occurrence: None)
  Receive Date: 20221208
  Receipt Date: 20221208
  Transmission Date: 20230113
  Serious: No
  Sender: FDA-Public Use
  Company Number: US-ROCHE-3231556

PATIENT
  Age: 71 Year
  Sex: Female
  Weight: 87.622 kg

DRUGS (24)
  1. OCREVUS [Suspect]
     Active Substance: OCRELIZUMAB
     Indication: Relapsing-remitting multiple sclerosis
     Dosage: FOR 2 DOSES
     Route: 042
     Dates: start: 202110
  2. OCREVUS [Suspect]
     Active Substance: OCRELIZUMAB
     Dosage: DATE OF TREATMENT:02/NOV/2021,16/NOV/2021,06/MAY/2022
     Route: 042
  3. DIETARY SUPPLEMENT [Concomitant]
     Active Substance: DIETARY SUPPLEMENT
  4. PRILOSEC [Concomitant]
     Active Substance: OMEPRAZOLE MAGNESIUM
  5. ARMODAFINIL [Concomitant]
     Active Substance: ARMODAFINIL
  6. CELEXA [Concomitant]
     Active Substance: CITALOPRAM HYDROBROMIDE
  7. DESYREL [Concomitant]
     Active Substance: TRAZODONE HYDROCHLORIDE
  8. LOSARTAN POTASSIUM [Concomitant]
     Active Substance: LOSARTAN POTASSIUM
     Indication: Hypertension
  9. ROSUVASTATIN CALCIUM [Concomitant]
     Active Substance: ROSUVASTATIN CALCIUM
     Indication: Blood cholesterol increased
  10. ASPIRIN [Concomitant]
     Active Substance: ASPIRIN
  11. FISH OIL [Concomitant]
     Active Substance: FISH OIL
  12. FLAXSEED [Concomitant]
     Active Substance: FLAX SEED
  13. FIBER [Concomitant]
     Active Substance: PSYLLIUM HUSK
  14. HERBALS\TURMERIC [Concomitant]
     Active Substance: HERBALS\TURMERIC
  15. VITAMIN B12 [Concomitant]
     Active Substance: CYANOCOBALAMIN
  16. VITAMIN C [Concomitant]
     Active Substance: ASCORBIC ACID
  17. ZINC [Concomitant]
     Active Substance: ZINC
  18. HAIR SKIN NAILS [Concomitant]
  19. ADULT MULTIVITAMIN [Concomitant]
  20. COENZYME Q10 [Concomitant]
     Active Substance: DIETARY SUPPLEMENT\UBIDECARENONE
  21. PROLIA [Concomitant]
     Active Substance: DENOSUMAB
  22. MAGOX [Concomitant]
  23. KENALOG [Concomitant]
     Active Substance: TRIAMCINOLONE ACETONIDE
  24. PRAVACHOL [Concomitant]
     Active Substance: PRAVASTATIN SODIUM

REACTIONS (3)
  - COVID-19 [Unknown]
  - Weight loss poor [Not Recovered/Not Resolved]
  - Balance disorder [Unknown]

NARRATIVE: CASE EVENT DATE: 20220201
